FAERS Safety Report 13914036 (Version 6)
Quarter: 2020Q1

REPORT INFORMATION
  Report Type: Spontaneous
  Country: US (occurrence: US)
  Receive Date: 20170829
  Receipt Date: 20200121
  Transmission Date: 20200409
  Serious: No
  Sender: FDA-Public Use
  Company Number: US-PFIZER INC-2017369719

PATIENT
  Age: 64 Year
  Sex: Male

DRUGS (5)
  1. RAPAMUNE [Suspect]
     Active Substance: SIROLIMUS
     Dosage: 0.5 MG, 1X/DAY
     Route: 048
     Dates: start: 201502
  2. RAPAMUNE [Suspect]
     Active Substance: SIROLIMUS
     Dosage: 3.5 MG, DAILY (3 OF THE 1MG AND 1 OF THE 0.5MG)
  3. RAPAMUNE [Suspect]
     Active Substance: SIROLIMUS
     Indication: HEART TRANSPLANT
     Dosage: 4.5 MG, DAILY (FOUR 1 MG TABLETS AND ONE 0.5MG TABLET)
     Route: 048
     Dates: start: 2015
  4. TACROLIMUS. [Concomitant]
     Active Substance: TACROLIMUS
     Indication: PROPHYLAXIS AGAINST TRANSPLANT REJECTION
     Dosage: 3 MG, 2X/DAY
     Dates: start: 2015
  5. RAPAMUNE [Suspect]
     Active Substance: SIROLIMUS
     Indication: IMMUNOSUPPRESSION
     Dosage: 1 MG, 1X/DAY
     Route: 048
     Dates: start: 201502

REACTIONS (3)
  - Off label use [Unknown]
  - Blood test abnormal [Unknown]
  - Product use in unapproved indication [Unknown]

NARRATIVE: CASE EVENT DATE: 2015
